FAERS Safety Report 8440369-4 (Version None)
Quarter: 2012Q2

REPORT INFORMATION
  Report Type: 
  Country: None (occurrence: None)
  Receive Date: 20120615
  Receipt Date: 20120606
  Transmission Date: 20120825
  Serious: Yes (Other)
  Sender: FDA-Public Use
  Company Number: US-ROCHE-784223

PATIENT
  Sex: Female
  Weight: 59.02 kg

DRUGS (3)
  1. ACCUTANE [Suspect]
     Indication: ACNE
     Route: 065
     Dates: start: 19990301, end: 19990801
  2. ORTHO-CEPT [Concomitant]
     Indication: CONTRACEPTION
  3. YASMIN [Concomitant]
     Indication: CONTRACEPTION

REACTIONS (8)
  - CROHN'S DISEASE [None]
  - ASPARTATE AMINOTRANSFERASE INCREASED [None]
  - DECREASED APPETITE [None]
  - FISTULA [None]
  - COLITIS ULCERATIVE [None]
  - STRESS [None]
  - INFLAMMATORY BOWEL DISEASE [None]
  - DEPRESSION [None]
